FAERS Safety Report 8123745-9 (Version None)
Quarter: 2012Q1

REPORT INFORMATION
  Report Type: 
  Country: None (occurrence: None)
  Receive Date: 20120208
  Receipt Date: 20120202
  Transmission Date: 20120608
  Serious: Yes (Life-Threatening, Disabling)
  Sender: FDA-Public Use
  Company Number: US-MERCK-1202USA00416

PATIENT
  Age: 58 Year
  Sex: Male
  Weight: 82 kg

DRUGS (4)
  1. ZOCOR [Suspect]
     Route: 048
     Dates: start: 20110301, end: 20110701
  2. SIMVASTATIN [Suspect]
     Route: 048
  3. SIMVASTATIN [Suspect]
     Route: 048
     Dates: start: 20060807, end: 20110301
  4. ZOCOR [Suspect]
     Route: 048

REACTIONS (5)
  - MUSCLE SPASMS [None]
  - PULMONARY FIBROSIS [None]
  - FATIGUE [None]
  - EOSINOPHILIC PNEUMONIA CHRONIC [None]
  - INTERSTITIAL LUNG DISEASE [None]
